FAERS Safety Report 15722029 (Version 1)
Quarter: 2018Q4

REPORT INFORMATION
  Report Type: Spontaneous
  Country: US (occurrence: US)
  Receive Date: 20181213
  Receipt Date: 20181213
  Transmission Date: 20190205
  Serious: No
  Sender: FDA-Public Use
  Company Number: None

PATIENT
  Age: 53 Year

DRUGS (1)
  1. ARMOUR THYROID [Suspect]
     Active Substance: THYROID, PORCINE

REACTIONS (4)
  - Drug ineffective [None]
  - Pyrexia [None]
  - Feeling abnormal [None]
  - Eye swelling [None]

NARRATIVE: CASE EVENT DATE: 20181101
